FAERS Safety Report 8352389-9 (Version None)
Quarter: 2012Q2

REPORT INFORMATION
  Report Type: 
  Country: None (occurrence: None)
  Receive Date: 20120511
  Receipt Date: 20120503
  Transmission Date: 20120825
  Serious: Yes (Other)
  Sender: FDA-Public Use
  Company Number: IT-ASTRAZENECA-2012SE27799

PATIENT
  Sex: Female

DRUGS (2)
  1. NOLVADEX [Suspect]
     Route: 048
     Dates: start: 20120111
  2. ARIMIDEX [Suspect]
     Route: 048

REACTIONS (5)
  - NAUSEA [None]
  - DRUG PRESCRIBING ERROR [None]
  - DYSPHAGIA [None]
  - MEDICATION ERROR [None]
  - LYMPHADENOPATHY [None]
